FAERS Safety Report 14259269 (Version 1)
Quarter: 2017Q4

REPORT INFORMATION
  Report Type: Other
  Country: CZ (occurrence: CZ)
  Receive Date: 20171207
  Receipt Date: 20171207
  Transmission Date: 20180321
  Serious: Yes (Other)
  Sender: FDA-Public Use
  Company Number: CZ-HIKMA PHARMACEUTICALS CO. LTD-2017CZ016707

PATIENT

DRUGS (7)
  1. BETALOC                            /00376903/ [Concomitant]
     Dosage: 200 MG, DAILY
  2. NOLPAZA [Concomitant]
     Active Substance: PANTOPRAZOLE SODIUM
     Dosage: UNK, DAILY
  3. REMSIMA [Suspect]
     Active Substance: INFLIXIMAB
     Indication: PSORIATIC ARTHROPATHY
     Dosage: 100 MG, EVERY 6 WEEKS
     Route: 042
     Dates: start: 20171123, end: 20171123
  4. PENTASA [Concomitant]
     Active Substance: MESALAMINE
  5. PARACETAMOL [Concomitant]
     Active Substance: ACETAMINOPHEN
  6. TRAMADOL HYDROCHLORIDE. [Concomitant]
     Active Substance: TRAMADOL HYDROCHLORIDE
     Dosage: 500 MG, Q8HR, DAILY
     Dates: start: 20170116
  7. ZALDIAR [Concomitant]
     Active Substance: ACETAMINOPHEN\TRAMADOL HYDROCHLORIDE

REACTIONS (5)
  - Localised oedema [Recovered/Resolved]
  - Palpitations [Recovered/Resolved]
  - Feeling hot [Recovered/Resolved]
  - Hot flush [Recovered/Resolved]
  - Inappropriate schedule of drug administration [Unknown]

NARRATIVE: CASE EVENT DATE: 20171123
